FAERS Safety Report 16074101 (Version 2)
Quarter: 2019Q3

REPORT INFORMATION
  Report Type: Report from Study
  Country: EG (occurrence: EG)
  Receive Date: 20190314
  Receipt Date: 20190702
  Transmission Date: 20191004
  Serious: Yes (Hospitalization, Other)
  Sender: FDA-Public Use
  Company Number: EG-SA-2019SA067326

PATIENT
  Age: 14 Year
  Sex: Male

DRUGS (4)
  1. NOVORAPID [Concomitant]
     Active Substance: INSULIN ASPART
     Dosage: 4 IU WITH EACH MEAL
  2. INSULIN GLARGINE [Suspect]
     Active Substance: INSULIN GLARGINE
     Dosage: 14 IU, QD
  3. ACTRAPID [Concomitant]
     Active Substance: INSULIN HUMAN
     Dosage: UNK UNK, UNK
  4. INSULIN GLARGINE [Suspect]
     Active Substance: INSULIN GLARGINE
     Indication: TYPE 1 DIABETES MELLITUS
     Dosage: 20 IU, QD
     Route: 058
     Dates: start: 2013

REACTIONS (9)
  - Diabetes mellitus inadequate control [Not Recovered/Not Resolved]
  - Seizure [Recovered/Resolved]
  - Vomiting [Recovered/Resolved]
  - Blood ketone body present [Recovered/Resolved]
  - Hypoglycaemia [Recovered/Resolved]
  - Blood ketone body present [Recovered/Resolved]
  - Vomiting [Recovered/Resolved]
  - Chest pain [Recovered/Resolved]
  - Hyperglycaemia [Recovered/Resolved]

NARRATIVE: CASE EVENT DATE: 20190215
